FAERS Safety Report 26012736 (Version 1)
Quarter: 2025Q4

REPORT INFORMATION
  Report Type: Spontaneous
  Country: US (occurrence: US)
  Receive Date: 20251107
  Receipt Date: 20251107
  Transmission Date: 20260118
  Serious: No
  Sender: XERIS PHARMACEUTICALS
  Company Number: US-BRIAN CONNER SVP QUALITY AND CHIEF COMPLIANCE OFFICER-2025XER00337

PATIENT
  Sex: Female

DRUGS (2)
  1. GVOKE [Suspect]
     Active Substance: GLUCAGON
     Indication: Diabetes mellitus
     Dosage: 1 MG (USED THE PEN BETWEEN 15 MINUTES AND A HALF HOUR AGO)
     Dates: start: 20250508, end: 20250508
  2. GVOKE [Suspect]
     Active Substance: GLUCAGON
     Indication: Blood glucose decreased

REACTIONS (2)
  - Drug ineffective [Unknown]
  - Product storage error [Recovered/Resolved]

NARRATIVE: CASE EVENT DATE: 20250101
